FAERS Safety Report 25002924 (Version 3)
Quarter: 2025Q1

REPORT INFORMATION
  Report Type: Report from Study
  Country: CA (occurrence: CA)
  Receive Date: 20250224
  Receipt Date: 20250307
  Transmission Date: 20250409
  Serious: Yes (Hospitalization, Other)
  Sender: TAKEDA
  Company Number: CA-TAKEDA-2025TUS018074

PATIENT
  Age: 58 Year
  Sex: Female

DRUGS (8)
  1. VEDOLIZUMAB [Suspect]
     Active Substance: VEDOLIZUMAB
     Indication: Colitis ulcerative
  2. VEDOLIZUMAB [Suspect]
     Active Substance: VEDOLIZUMAB
     Dosage: 300 MILLIGRAM, Q4WEEKS
     Dates: start: 20240208
  3. SYNTHROID [Concomitant]
     Active Substance: LEVOTHYROXINE SODIUM
  4. IRON [Concomitant]
     Active Substance: IRON
  5. Salofalk [Concomitant]
     Dosage: 2 GRAM, QD
     Dates: start: 2000
  6. PREDNISONE [Concomitant]
     Active Substance: PREDNISONE
  7. NAPROSYN [Concomitant]
     Active Substance: NAPROXEN
  8. COLCHICINE [Concomitant]
     Active Substance: COLCHICINE

REACTIONS (3)
  - Pericarditis [Unknown]
  - Asthenia [Unknown]
  - Off label use [Unknown]

NARRATIVE: CASE EVENT DATE: 20240208
